FAERS Safety Report 9723206 (Version 3)
Quarter: 2015Q4

REPORT INFORMATION
  Report Type: Spontaneous
  Country: US (occurrence: US)
  Receive Date: 20131202
  Receipt Date: 20151001
  Transmission Date: 20160305
  Serious: Yes (Other)
  Sender: FDA-Public Use
  Company Number: US-ELI_LILLY_AND_COMPANY-US201311007045

PATIENT
  Sex: Male

DRUGS (12)
  1. LINZESS [Concomitant]
     Active Substance: LINACLOTIDE
     Dosage: 145 MG, UNK
  2. LANTUS [Concomitant]
     Active Substance: INSULIN GLARGINE
  3. COLACE [Concomitant]
     Active Substance: DOCUSATE SODIUM
  4. HUMALOG [Suspect]
     Active Substance: INSULIN LISPRO
     Indication: TYPE 2 DIABETES MELLITUS
     Dosage: 3 U, BID
     Route: 058
     Dates: start: 2005
  5. TRADJENTA [Concomitant]
     Active Substance: LINAGLIPTIN
  6. LEVODOPA [Concomitant]
     Active Substance: LEVODOPA
     Indication: PARKINSON^S DISEASE
  7. WARFARIN [Concomitant]
     Active Substance: WARFARIN
  8. NEXIUM [Concomitant]
     Active Substance: ESOMEPRAZOLE MAGNESIUM
     Dosage: 40 MG, UNK
  9. XANAX [Concomitant]
     Active Substance: ALPRAZOLAM
  10. HUMALOG [Suspect]
     Active Substance: INSULIN LISPRO
     Dosage: 4 U, QD
     Route: 065
     Dates: start: 2005
  11. SYNTHROID [Concomitant]
     Active Substance: LEVOTHYROXINE SODIUM
  12. BAYER ASPIRIN [Concomitant]
     Active Substance: ASPIRIN

REACTIONS (13)
  - Blindness [Not Recovered/Not Resolved]
  - Dizziness [Unknown]
  - Haemorrhage [Unknown]
  - Blindness [Unknown]
  - Weight decreased [Unknown]
  - Blood glucose increased [Unknown]
  - Eye haemorrhage [Unknown]
  - Parkinson^s disease [Not Recovered/Not Resolved]
  - Abdominal pain [Unknown]
  - Laceration [Unknown]
  - Cerebrovascular accident [Recovered/Resolved with Sequelae]
  - Fall [Unknown]
  - Insomnia [Not Recovered/Not Resolved]

NARRATIVE: CASE EVENT DATE: 2014
